FAERS Safety Report 6103912-6 (Version None)
Quarter: 2009Q1

REPORT INFORMATION
  Report Type: 
  Country: None (occurrence: None)
  Receive Date: 20090305
  Receipt Date: 20090227
  Transmission Date: 20090719
  Serious: Yes (Other)
  Sender: FDA-Public Use
  Company Number: A0751189C

PATIENT
  Age: 60 Year
  Sex: Male
  Weight: 91 kg

DRUGS (16)
  1. LAPATINIB [Suspect]
     Indication: HEAD AND NECK CANCER
     Dosage: 1500MG PER DAY
     Route: 048
     Dates: start: 20080911
  2. CISPLATIN [Suspect]
     Indication: HEAD AND NECK CANCER
     Dosage: 100MGM2 CYCLIC
     Route: 042
     Dates: start: 20080916
  3. RADIATION [Suspect]
     Indication: HEAD AND NECK CANCER
     Dosage: 1.77GY PER DAY
     Route: 061
     Dates: start: 20080915
  4. AMLOR [Concomitant]
     Dosage: 5MG PER DAY
  5. ATARAX [Concomitant]
     Dosage: 25MG PER DAY
     Dates: start: 20080922
  6. DIPROSONE [Concomitant]
     Dosage: 2APP AS REQUIRED
     Dates: start: 20081020
  7. ACETAMINOPHEN AND CODEINE PHOSPHATE [Concomitant]
     Route: 048
     Dates: start: 20081020, end: 20081030
  8. EOSINE [Concomitant]
     Route: 062
  9. FORLAX [Concomitant]
  10. LEXOMIL [Concomitant]
     Dosage: .25TAB PER DAY
     Route: 048
     Dates: start: 20080924, end: 20081230
  11. LANSOPRAZOLE [Concomitant]
     Dosage: 30MG PER DAY
     Dates: start: 20081015, end: 20081115
  12. SEROPRAM [Concomitant]
     Dosage: .5TAB PER DAY
     Dates: start: 20080930, end: 20081230
  13. SOLUPRED [Concomitant]
     Dosage: 40MG PER DAY
     Dates: start: 20081003, end: 20081108
  14. STILNOX [Concomitant]
     Dosage: 1TAB WEEKLY
     Dates: start: 20080924, end: 20081230
  15. TRIFLUCAN [Concomitant]
     Dosage: 100MG PER DAY
     Dates: start: 20081015, end: 20081201
  16. CARBOPLATIN [Concomitant]
     Dates: start: 20081014, end: 20081014

REACTIONS (1)
  - LYMPHOPENIA [None]
